FAERS Safety Report 8607695 (Version 3)
Quarter: 2013Q4

REPORT INFORMATION
  Report Type: Spontaneous
  Country: US (occurrence: US)
  Receive Date: 20120611
  Receipt Date: 20131129
  Transmission Date: 20140711
  Serious: Yes (Hospitalization, Other)
  Sender: FDA-Public Use
  Company Number: US-ASTRAZENECA-2012SE35191

PATIENT
  Age: 54 Year
  Sex: Female
  Weight: 71.7 kg

DRUGS (15)
  1. NEXIUM [Suspect]
     Indication: GASTROOESOPHAGEAL REFLUX DISEASE
     Dosage: TWO TIMES A DAY
     Route: 048
     Dates: start: 200309, end: 201007
  2. NEXIUM [Suspect]
     Indication: GASTROOESOPHAGEAL REFLUX DISEASE
     Route: 048
     Dates: start: 20110124
  3. LISINOPRIL [Concomitant]
     Dates: start: 20110124
  4. ENDOCET [Concomitant]
     Dosage: 10/325 MG
     Dates: start: 20110124
  5. METHOCARBAMOL [Concomitant]
     Dates: start: 20110124
  6. TEGRETOL XR [Concomitant]
     Dates: start: 20110128
  7. CELEBREX [Concomitant]
     Dates: start: 20110131
  8. AMLODIPINE BESYLAT [Concomitant]
     Dates: start: 20110217
  9. METOPROLOL SUCC ER [Concomitant]
     Dates: start: 20110217
  10. LAMOTRIGINE [Concomitant]
     Dates: start: 20110207
  11. CRESTOR [Concomitant]
     Dates: start: 20110208
  12. SINGULAIR [Concomitant]
     Dates: start: 20110208
  13. CYMBALTA [Concomitant]
     Dates: start: 20110217
  14. ALPRAZOLAM [Concomitant]
     Dates: start: 20110217
  15. OMEPRAZOLE [Concomitant]
     Dates: start: 20110628

REACTIONS (11)
  - Spinal fracture [Unknown]
  - Cervical vertebral fracture [Unknown]
  - Pelvic fracture [Unknown]
  - Upper respiratory tract infection [Unknown]
  - Osteoporosis [Unknown]
  - Wrist fracture [Unknown]
  - Upper limb fracture [Unknown]
  - Influenza [Unknown]
  - Ear pain [Unknown]
  - Cataract [Unknown]
  - Depression [Unknown]
